FAERS Safety Report 10479693 (Version 1)
Quarter: 2014Q3

REPORT INFORMATION
  Report Type: Spontaneous
  Country: US (occurrence: None)
  Receive Date: 20140924
  Receipt Date: 20140924
  Transmission Date: 20150326
  Serious: Yes (Death, Hospitalization, Other)
  Sender: FDA-Public Use
  Company Number: 2011SGN00339

PATIENT
  Age: 32 Year
  Sex: Female
  Weight: 113.4 kg

DRUGS (12)
  1. FLUCONAZOLE. [Concomitant]
     Active Substance: FLUCONAZOLE
  2. OMEPRAZOLE. [Concomitant]
     Active Substance: OMEPRAZOLE
  3. BIOTENE [Concomitant]
     Active Substance: SODIUM MONOFLUOROPHOSPHATE
  4. MULTIVITIMAN [Concomitant]
  5. LORAZEPAM. [Concomitant]
     Active Substance: LORAZEPAM
  6. BRENTUXIMAB VEDOTIN [Suspect]
     Active Substance: BRENTUXIMAB VEDOTIN
     Indication: HODGKIN^S DISEASE
     Route: 042
     Dates: start: 20111018, end: 20111122
  7. ACYCLOVIR. [Concomitant]
     Active Substance: ACYCLOVIR
  8. SULFAMETHOXAZOLE AND TRIMETHOPRIM [Concomitant]
     Active Substance: SULFAMETHOXAZOLE\TRIMETHOPRIM
  9. PROCHLORPERAZINE. [Concomitant]
     Active Substance: PROCHLORPERAZINE
  10. MEGESTROL ACETATE. [Concomitant]
     Active Substance: MEGESTROL ACETATE
  11. TRIMETHOBENZAMIDE [Concomitant]
     Active Substance: TRIMETHOBENZAMIDE
  12. FOLIC ACID. [Concomitant]
     Active Substance: FOLIC ACID

REACTIONS (15)
  - Pneumonitis [None]
  - Atelectasis [None]
  - Staphylococcus test positive [None]
  - Oxygen saturation decreased [None]
  - Emphysema [None]
  - Pulseless electrical activity [None]
  - Vomiting [None]
  - Diarrhoea [None]
  - Anuria [None]
  - Liver function test abnormal [None]
  - Troponin increased [None]
  - Acute respiratory distress syndrome [None]
  - Constipation [None]
  - Pneumonia [None]
  - Septic shock [None]

NARRATIVE: CASE EVENT DATE: 20111127
